FAERS Safety Report 10263367 (Version 1)
Quarter: 2014Q2

REPORT INFORMATION
  Report Type: Spontaneous
  Country: US (occurrence: US)
  Receive Date: 20140626
  Receipt Date: 20140626
  Transmission Date: 20141212
  Serious: Yes (Hospitalization, Other)
  Sender: FDA-Public Use
  Company Number: US-MYLANLABS-2014S1014786

PATIENT
  Age: 46 Year
  Sex: Female
  Weight: 54.43 kg

DRUGS (3)
  1. LEVOTHYROXINE SODIUM TABLETS, USP [Suspect]
     Indication: HYPOTHYROIDISM
     Route: 048
     Dates: start: 201402, end: 201404
  2. LEVOTHYROXINE SODIUM TABLETS, USP [Suspect]
     Indication: HYPOTHYROIDISM
     Route: 048
  3. BETA BLOCKING AGENTS [Concomitant]
     Indication: BLOOD PRESSURE INCREASED

REACTIONS (3)
  - Acidosis [Recovered/Resolved]
  - Blood albumin decreased [Recovered/Resolved]
  - Rash generalised [Not Recovered/Not Resolved]
